FAERS Safety Report 4556430-0 (Version None)
Quarter: 2005Q1

REPORT INFORMATION
  Report Type: 
  Country: None (occurrence: None)
  Receive Date: 20050120
  Receipt Date: 20031222
  Transmission Date: 20050727
  Serious: Yes (Hospitalization, Other)
  Sender: FDA-Public Use
  Company Number: PHBS2003JP14452

PATIENT
  Age: 74 Year
  Sex: Male

DRUGS (15)
  1. LENDORMIN [Concomitant]
     Dosage: 3 DF/D
     Route: 048
  2. LOXONIN [Concomitant]
     Dosage: 3 DF/D
     Route: 048
  3. ARTIST [Concomitant]
     Dosage: 20 MG/D
     Route: 048
  4. GASTER D [Concomitant]
     Dosage: 20 MG/D
     Route: 048
  5. ZYRTEC [Concomitant]
     Dosage: 1 DF, QD
     Route: 048
     Dates: start: 20031031, end: 20031124
  6. LAMISIL [Suspect]
     Indication: NAIL TINEA
     Dosage: 125 MG, QD
     Route: 048
     Dates: start: 20031125, end: 20031201
  7. EBASTEL [Suspect]
     Dosage: 1 DF, QD
     Route: 048
     Dates: start: 20031125, end: 20041201
  8. SIGMART [Concomitant]
     Dosage: 10 MG/D
     Route: 048
  9. MYONAL [Concomitant]
     Dosage: 150 MG/D
     Route: 048
  10. ALESION [Concomitant]
     Route: 048
  11. MYSER [Concomitant]
     Dosage: 1 G/D
     Route: 061
     Dates: start: 20031125, end: 20031219
  12. HIRUDOID [Concomitant]
     Dosage: 3 G/D
     Route: 061
     Dates: start: 20031117, end: 20031219
  13. EURAX [Concomitant]
     Dosage: 3 G/D
     Route: 061
     Dates: start: 20031117, end: 20031219
  14. LIDOMEX [Concomitant]
     Dosage: 0.5 G/D
     Route: 061
     Dates: start: 20031031, end: 20031219
  15. DEPRODONE PROPIONATE [Concomitant]
     Dosage: 1 G/D
     Route: 061
     Dates: start: 20031125, end: 20031219

REACTIONS (16)
  - ABASIA [None]
  - ASTHENIA [None]
  - BLOOD CREATININE INCREASED [None]
  - BLOOD UREA INCREASED [None]
  - CEREBROVASCULAR DISORDER [None]
  - EPILEPSY [None]
  - EYE MOVEMENT DISORDER [None]
  - OLIGURIA [None]
  - PAIN [None]
  - PORIOMANIA [None]
  - PRURITUS [None]
  - RENAL DISORDER [None]
  - RESTLESSNESS [None]
  - SOMNOLENCE [None]
  - STUPOR [None]
  - TONIC CONVULSION [None]
